FAERS Safety Report 9205715 (Version 1)
Quarter: 2013Q2

REPORT INFORMATION
  Report Type: Spontaneous
  Country: GB (occurrence: GB)
  Receive Date: 20130403
  Receipt Date: 20130403
  Transmission Date: 20140414
  Serious: Yes (Hospitalization)
  Sender: FDA-Public Use
  Company Number: GB-PFIZER INC-GB-WYE-G00840408

PATIENT
  Age: 58 Year
  Sex: Female

DRUGS (9)
  1. IBUPROFEN [Suspect]
     Indication: BACK PAIN
     Dosage: 400 MG FREQUENCY UNKNNOWN
     Route: 048
     Dates: start: 20071007, end: 20071218
  2. DICLOFENAC [Suspect]
     Indication: BACK PAIN
     Dosage: 50 MG FREQUENCY UNKNOWN
     Route: 048
     Dates: start: 20070926, end: 20071218
  3. ATROVENT [Concomitant]
     Indication: ASTHMA
     Dosage: 20 UG FREQUENCY UNKNOWN
     Route: 055
     Dates: start: 20071129
  4. CO-CODAMOL [Concomitant]
     Indication: BACK PAIN
     Dosage: UNKNOWN
     Route: 065
     Dates: start: 20071027
  5. GAVISCON ADVANCE [Concomitant]
     Indication: DYSPEPSIA
     Dosage: 10 ML FREQUENCY UNKNOWN
     Route: 048
     Dates: start: 20070926
  6. OMEPRAZOLE [Concomitant]
     Indication: PROPHYLAXIS AGAINST GASTROINTESTINAL ULCER
     Dosage: 20 MG FREQUENCY UNKNOWN
     Route: 048
     Dates: start: 20071020, end: 200712
  7. OMEPRAZOLE [Concomitant]
     Dosage: UNKNOWN
     Route: 065
     Dates: start: 200712
  8. SALBUTAMOL [Concomitant]
     Indication: ASTHMA
     Dosage: 100 UG
     Route: 055
     Dates: start: 20071129
  9. DOMPERIDONE [Concomitant]
     Indication: PROPHYLAXIS OF NAUSEA AND VOMITING
     Dosage: 10 MG, UNK
     Route: 048

REACTIONS (2)
  - Haematemesis [Not Recovered/Not Resolved]
  - Convulsion [Not Recovered/Not Resolved]
